FAERS Safety Report 24680218 (Version 3)
Quarter: 2025Q1

REPORT INFORMATION
  Report Type: Spontaneous
  Country: CA (occurrence: CA)
  Receive Date: 20241129
  Receipt Date: 20250214
  Transmission Date: 20250409
  Serious: Yes (Congenital Anomaly)
  Sender: BRISTOL-MYERS SQUIBB COMPANY
  Company Number: CA-BRISTOL-MYERS SQUIBB COMPANY-2024-182805

PATIENT

DRUGS (251)
  1. TRIAMCINOLONE ACETONIDE [Suspect]
     Active Substance: TRIAMCINOLONE ACETONIDE
     Indication: Product used for unknown indication
     Route: 064
  2. ORENCIA [Suspect]
     Active Substance: ABATACEPT
     Indication: Product used for unknown indication
     Route: 064
  3. ORENCIA [Suspect]
     Active Substance: ABATACEPT
     Route: 064
  4. ORENCIA [Suspect]
     Active Substance: ABATACEPT
     Indication: Product used for unknown indication
     Route: 064
  5. ORENCIA [Suspect]
     Active Substance: ABATACEPT
     Indication: Product used for unknown indication
     Route: 064
  6. ORENCIA [Suspect]
     Active Substance: ABATACEPT
     Route: 064
  7. ORENCIA [Suspect]
     Active Substance: ABATACEPT
     Route: 064
  8. ACETAMINOPHEN\TRAMADOL HYDROCHLORIDE [Concomitant]
     Active Substance: ACETAMINOPHEN\TRAMADOL HYDROCHLORIDE
     Indication: Product used for unknown indication
     Route: 064
  9. ACETAMINOPHEN\CAFFEINE\CODEINE PHOSPHATE [Concomitant]
     Active Substance: ACETAMINOPHEN\CAFFEINE\CODEINE PHOSPHATE
     Indication: Product used for unknown indication
     Route: 064
  10. ATIVAN [Concomitant]
     Active Substance: LORAZEPAM
     Indication: Product used for unknown indication
     Route: 064
  11. CAFFEINE CITRATE [Concomitant]
     Active Substance: CAFFEINE CITRATE
     Indication: Product used for unknown indication
     Route: 064
  12. CALCIUM GLUBIONATE [Concomitant]
     Active Substance: CALCIUM GLUBIONATE
     Indication: Product used for unknown indication
     Route: 064
  13. CALCIUM GLUBIONATE [Concomitant]
     Active Substance: CALCIUM GLUBIONATE
     Route: 064
  14. CHLORHEXIDINE GLUCONATE [Concomitant]
     Active Substance: CHLORHEXIDINE GLUCONATE
     Indication: Product used for unknown indication
     Route: 064
  15. CHLORHEXIDINE GLUCONATE [Concomitant]
     Active Substance: CHLORHEXIDINE GLUCONATE
     Route: 064
  16. DESOGESTREL AND ETHINYL ESTRADIOL [Concomitant]
     Active Substance: DESOGESTREL\ETHINYL ESTRADIOL
     Indication: Product used for unknown indication
     Route: 064
  17. DICLOFENAC POTASSIUM [Concomitant]
     Active Substance: DICLOFENAC POTASSIUM
     Indication: Product used for unknown indication
     Route: 064
  18. DICLOFENAC POTASSIUM [Concomitant]
     Active Substance: DICLOFENAC POTASSIUM
     Route: 064
  19. DICLOFENAC SODIUM [Concomitant]
     Active Substance: DICLOFENAC SODIUM
     Indication: Product used for unknown indication
     Route: 064
  20. DICLOFENAC SODIUM [Concomitant]
     Active Substance: DICLOFENAC SODIUM
     Route: 064
  21. DICLOFENAC SODIUM [Concomitant]
     Active Substance: DICLOFENAC SODIUM
     Route: 064
  22. ENTYVIO [Concomitant]
     Active Substance: VEDOLIZUMAB
     Indication: Product used for unknown indication
     Route: 064
  23. ENTYVIO [Concomitant]
     Active Substance: VEDOLIZUMAB
     Route: 064
  24. GLUCOSAMINE [Concomitant]
     Active Substance: GLUCOSAMINE
     Indication: Product used for unknown indication
     Route: 064
  25. HUMIRA [Concomitant]
     Active Substance: ADALIMUMAB
     Indication: Product used for unknown indication
     Route: 064
  26. HUMIRA [Concomitant]
     Active Substance: ADALIMUMAB
     Route: 064
  27. HUMIRA [Concomitant]
     Active Substance: ADALIMUMAB
     Route: 064
  28. HUMIRA [Concomitant]
     Active Substance: ADALIMUMAB
     Route: 064
  29. HUMIRA [Concomitant]
     Active Substance: ADALIMUMAB
     Route: 064
  30. HYDROCORTISONE [Concomitant]
     Active Substance: HYDROCORTISONE
     Indication: Product used for unknown indication
     Route: 064
  31. HYDROCORTISONE [Concomitant]
     Active Substance: HYDROCORTISONE
     Route: 064
  32. HYDROXYCHLOROQUINE [Concomitant]
     Active Substance: HYDROXYCHLOROQUINE
     Indication: Product used for unknown indication
     Route: 064
  33. HYDROXYCHLOROQUINE [Concomitant]
     Active Substance: HYDROXYCHLOROQUINE
     Route: 064
  34. HYDROXYCHLOROQUINE [Concomitant]
     Active Substance: HYDROXYCHLOROQUINE
     Route: 064
  35. HYDROXYCHLOROQUINE [Concomitant]
     Active Substance: HYDROXYCHLOROQUINE
     Route: 064
  36. HYDROXYCHLOROQUINE [Concomitant]
     Active Substance: HYDROXYCHLOROQUINE
     Route: 064
  37. HYDROXYCHLOROQUINE [Concomitant]
     Active Substance: HYDROXYCHLOROQUINE
     Route: 064
  38. HYDROXYCHLOROQUINE [Concomitant]
     Active Substance: HYDROXYCHLOROQUINE
     Route: 064
  39. HYDROXYCHLOROQUINE [Concomitant]
     Active Substance: HYDROXYCHLOROQUINE
     Route: 064
  40. HYDROXYCHLOROQUINE [Concomitant]
     Active Substance: HYDROXYCHLOROQUINE
     Route: 064
  41. HYDROXYCHLOROQUINE [Concomitant]
     Active Substance: HYDROXYCHLOROQUINE
     Route: 064
  42. IBUPROFEN [Concomitant]
     Active Substance: IBUPROFEN
     Indication: Product used for unknown indication
     Route: 064
  43. INFLIXIMAB [Concomitant]
     Active Substance: INFLIXIMAB
     Indication: Product used for unknown indication
     Route: 064
  44. INFLIXIMAB [Concomitant]
     Active Substance: INFLIXIMAB
     Route: 064
  45. INOSITOL [Concomitant]
     Active Substance: INOSITOL
     Indication: Product used for unknown indication
     Route: 064
  46. ISOPROPYL ALCOHOL [Concomitant]
     Active Substance: ISOPROPYL ALCOHOL
     Indication: Product used for unknown indication
     Route: 064
  47. ISOPROPYL ALCOHOL [Concomitant]
     Active Substance: ISOPROPYL ALCOHOL
     Route: 064
  48. ISOPROPYL ALCOHOL [Concomitant]
     Active Substance: ISOPROPYL ALCOHOL
     Route: 064
  49. LEFLUNOMIDE [Concomitant]
     Active Substance: LEFLUNOMIDE
     Indication: Product used for unknown indication
     Route: 064
  50. LEFLUNOMIDE [Concomitant]
     Active Substance: LEFLUNOMIDE
     Route: 064
  51. LEFLUNOMIDE [Concomitant]
     Active Substance: LEFLUNOMIDE
     Route: 064
  52. LEFLUNOMIDE [Concomitant]
     Active Substance: LEFLUNOMIDE
     Route: 064
  53. LEFLUNOMIDE [Concomitant]
     Active Substance: LEFLUNOMIDE
     Route: 064
  54. LEFLUNOMIDE [Concomitant]
     Active Substance: LEFLUNOMIDE
     Route: 064
  55. LISINOPRIL [Concomitant]
     Active Substance: LISINOPRIL
     Indication: Product used for unknown indication
     Route: 064
  56. LORAZEPAM [Concomitant]
     Active Substance: LORAZEPAM
     Indication: Product used for unknown indication
     Route: 064
  57. MARVELON [Concomitant]
     Active Substance: DESOGESTREL\ETHINYL ESTRADIOL
     Indication: Product used for unknown indication
     Route: 064
  58. METHYLPREDNISOLONE SODIUM SUCCINATE [Concomitant]
     Active Substance: METHYLPREDNISOLONE SODIUM SUCCINATE
     Indication: Product used for unknown indication
     Route: 064
  59. NAPROXEN [Concomitant]
     Active Substance: NAPROXEN
     Indication: Product used for unknown indication
     Route: 064
  60. NAPROXEN [Concomitant]
     Active Substance: NAPROXEN
     Route: 064
  61. PANTOPRAZOLE SODIUM [Concomitant]
     Active Substance: PANTOPRAZOLE SODIUM
     Indication: Product used for unknown indication
     Route: 064
  62. PANTOPRAZOLE SODIUM [Concomitant]
     Active Substance: PANTOPRAZOLE SODIUM
     Route: 064
  63. PERIOGARD [Concomitant]
     Active Substance: CHLORHEXIDINE GLUCONATE
     Indication: Product used for unknown indication
     Route: 064
  64. PERIOGARD [Concomitant]
     Active Substance: CHLORHEXIDINE GLUCONATE
     Route: 064
  65. PREDNISOLONE [Concomitant]
     Active Substance: PREDNISOLONE
     Indication: Product used for unknown indication
     Route: 064
  66. CETIRIZINE HYDROCHLORIDE [Concomitant]
     Active Substance: CETIRIZINE HYDROCHLORIDE
     Indication: Product used for unknown indication
     Route: 064
  67. CETIRIZINE HYDROCHLORIDE [Concomitant]
     Active Substance: CETIRIZINE HYDROCHLORIDE
     Route: 064
  68. CETIRIZINE HYDROCHLORIDE [Concomitant]
     Active Substance: CETIRIZINE HYDROCHLORIDE
     Route: 064
  69. CETIRIZINE HYDROCHLORIDE [Concomitant]
     Active Substance: CETIRIZINE HYDROCHLORIDE
     Route: 064
  70. CETIRIZINE HYDROCHLORIDE [Concomitant]
     Active Substance: CETIRIZINE HYDROCHLORIDE
     Route: 064
  71. CETIRIZINE HYDROCHLORIDE [Concomitant]
     Active Substance: CETIRIZINE HYDROCHLORIDE
     Route: 064
  72. CETIRIZINE HYDROCHLORIDE [Concomitant]
     Active Substance: CETIRIZINE HYDROCHLORIDE
     Route: 064
  73. CETIRIZINE HYDROCHLORIDE [Concomitant]
     Active Substance: CETIRIZINE HYDROCHLORIDE
     Route: 064
  74. CETIRIZINE HYDROCHLORIDE\PSEUDOEPHEDRINE HYDROCHLORIDE [Concomitant]
     Active Substance: CETIRIZINE HYDROCHLORIDE\PSEUDOEPHEDRINE HYDROCHLORIDE
     Indication: Product used for unknown indication
     Route: 064
  75. CETIRIZINE HYDROCHLORIDE\PSEUDOEPHEDRINE HYDROCHLORIDE [Concomitant]
     Active Substance: CETIRIZINE HYDROCHLORIDE\PSEUDOEPHEDRINE HYDROCHLORIDE
     Route: 064
  76. CETIRIZINE HYDROCHLORIDE\PSEUDOEPHEDRINE HYDROCHLORIDE [Concomitant]
     Active Substance: CETIRIZINE HYDROCHLORIDE\PSEUDOEPHEDRINE HYDROCHLORIDE
     Route: 064
  77. CETIRIZINE HYDROCHLORIDE\PSEUDOEPHEDRINE HYDROCHLORIDE [Concomitant]
     Active Substance: CETIRIZINE HYDROCHLORIDE\PSEUDOEPHEDRINE HYDROCHLORIDE
     Route: 064
  78. CETIRIZINE HYDROCHLORIDE\PSEUDOEPHEDRINE HYDROCHLORIDE [Concomitant]
     Active Substance: CETIRIZINE HYDROCHLORIDE\PSEUDOEPHEDRINE HYDROCHLORIDE
     Route: 064
  79. RITUXIMAB [Concomitant]
     Active Substance: RITUXIMAB
     Indication: Product used for unknown indication
     Route: 064
  80. RITUXIMAB [Concomitant]
     Active Substance: RITUXIMAB
     Route: 064
  81. RITUXIMAB [Concomitant]
     Active Substance: RITUXIMAB
     Route: 064
  82. RITUXIMAB [Concomitant]
     Active Substance: RITUXIMAB
     Route: 064
  83. RITUXIMAB [Concomitant]
     Active Substance: RITUXIMAB
     Route: 064
  84. DIETARY SUPPLEMENT\HERBALS [Concomitant]
     Active Substance: DIETARY SUPPLEMENT\HERBALS
     Indication: Product used for unknown indication
     Route: 064
  85. DIETARY SUPPLEMENT\HERBALS [Concomitant]
     Active Substance: DIETARY SUPPLEMENT\HERBALS
     Route: 064
  86. SIMPONI [Concomitant]
     Active Substance: GOLIMUMAB
     Indication: Product used for unknown indication
     Route: 064
  87. SIMPONI [Concomitant]
     Active Substance: GOLIMUMAB
     Route: 064
  88. SIMPONI [Concomitant]
     Active Substance: GOLIMUMAB
     Route: 064
  89. SIMPONI [Concomitant]
     Active Substance: GOLIMUMAB
     Route: 064
  90. SULFAMETHOXAZOLE [Concomitant]
     Active Substance: SULFAMETHOXAZOLE
     Indication: Product used for unknown indication
     Route: 064
  91. SULFASALAZINE [Concomitant]
     Active Substance: SULFASALAZINE
     Indication: Product used for unknown indication
     Route: 064
  92. SULFASALAZINE [Concomitant]
     Active Substance: SULFASALAZINE
     Route: 064
  93. SULFASALAZINE [Concomitant]
     Active Substance: SULFASALAZINE
     Route: 064
  94. SULFASALAZINE [Concomitant]
     Active Substance: SULFASALAZINE
     Route: 064
  95. SULFASALAZINE [Concomitant]
     Active Substance: SULFASALAZINE
     Route: 064
  96. SULFASALAZINE [Concomitant]
     Active Substance: SULFASALAZINE
     Route: 064
  97. SULFASALAZINE [Concomitant]
     Active Substance: SULFASALAZINE
     Route: 064
  98. SULFASALAZINE [Concomitant]
     Active Substance: SULFASALAZINE
     Route: 064
  99. SULFASALAZINE [Concomitant]
     Active Substance: SULFASALAZINE
     Route: 064
  100. SULFASALAZINE [Concomitant]
     Active Substance: SULFASALAZINE
     Route: 064
  101. SULFASALAZINE [Concomitant]
     Active Substance: SULFASALAZINE
     Route: 064
  102. THIAMINE HYDROCHLORIDE [Concomitant]
     Active Substance: THIAMINE HYDROCHLORIDE
     Indication: Product used for unknown indication
     Route: 064
  103. TOFACITINIB CITRATE [Concomitant]
     Active Substance: TOFACITINIB CITRATE
     Indication: Product used for unknown indication
     Route: 064
  104. TOFACITINIB CITRATE [Concomitant]
     Active Substance: TOFACITINIB CITRATE
     Route: 064
  105. TOPIRAMATE [Concomitant]
     Active Substance: TOPIRAMATE
     Indication: Product used for unknown indication
     Route: 064
  106. TOPIRAMATE [Concomitant]
     Active Substance: TOPIRAMATE
     Route: 064
  107. TOPIRAMATE [Concomitant]
     Active Substance: TOPIRAMATE
     Route: 064
  108. TOPIRAMATE [Concomitant]
     Active Substance: TOPIRAMATE
     Route: 064
  109. TRAMADOL HYDROCHLORIDE [Concomitant]
     Active Substance: TRAMADOL HYDROCHLORIDE
     Indication: Product used for unknown indication
     Route: 064
  110. TUMS [Concomitant]
     Active Substance: CALCIUM CARBONATE
     Indication: Product used for unknown indication
     Route: 064
  111. TYLENOL [Concomitant]
     Active Substance: ACETAMINOPHEN
     Indication: Product used for unknown indication
     Route: 064
  112. USTEKINUMAB [Concomitant]
     Active Substance: USTEKINUMAB
     Indication: Product used for unknown indication
     Route: 064
  113. PREDNISONE [Concomitant]
     Active Substance: PREDNISONE
     Indication: Product used for unknown indication
     Route: 064
  114. XELJANZ [Concomitant]
     Active Substance: TOFACITINIB CITRATE
     Indication: Product used for unknown indication
     Route: 064
  115. XELJANZ [Concomitant]
     Active Substance: TOFACITINIB CITRATE
     Route: 064
  116. XELJANZ [Concomitant]
     Active Substance: TOFACITINIB CITRATE
     Route: 064
  117. XELJANZ [Concomitant]
     Active Substance: TOFACITINIB CITRATE
     Route: 064
  118. XELJANZ [Concomitant]
     Active Substance: TOFACITINIB CITRATE
     Route: 064
  119. XELJANZ [Concomitant]
     Active Substance: TOFACITINIB CITRATE
     Route: 064
  120. ZESTRIL [Concomitant]
     Active Substance: LISINOPRIL
     Indication: Product used for unknown indication
     Route: 064
  121. ZOPICLONE [Concomitant]
     Active Substance: ZOPICLONE
     Indication: Product used for unknown indication
     Route: 064
  122. ACETAMINOPHEN AND CODEINE [Concomitant]
     Active Substance: ACETAMINOPHEN\CODEINE PHOSPHATE
     Indication: Product used for unknown indication
     Route: 064
  123. BERINERT [Concomitant]
     Active Substance: HUMAN C1-ESTERASE INHIBITOR
     Indication: Product used for unknown indication
     Route: 064
  124. CIMZIA [Concomitant]
     Active Substance: CERTOLIZUMAB PEGOL
     Indication: Product used for unknown indication
     Route: 064
  125. CIMZIA [Concomitant]
     Active Substance: CERTOLIZUMAB PEGOL
     Route: 064
  126. CIMZIA [Concomitant]
     Active Substance: CERTOLIZUMAB PEGOL
     Route: 064
  127. CIMZIA [Concomitant]
     Active Substance: CERTOLIZUMAB PEGOL
     Route: 064
  128. CIMZIA [Concomitant]
     Active Substance: CERTOLIZUMAB PEGOL
     Route: 064
  129. DICLOFENAC [Concomitant]
     Active Substance: DICLOFENAC
     Indication: Product used for unknown indication
     Route: 064
  130. DICLOFENAC DIETHYLAMINE [Concomitant]
     Active Substance: DICLOFENAC DIETHYLAMINE
     Indication: Product used for unknown indication
     Route: 064
  131. DOMPERIDONE MALEATE [Concomitant]
     Active Substance: DOMPERIDONE MALEATE
     Indication: Product used for unknown indication
     Route: 064
  132. ENBREL [Concomitant]
     Active Substance: ETANERCEPT
     Indication: Product used for unknown indication
     Route: 064
  133. ENBREL [Concomitant]
     Active Substance: ETANERCEPT
     Route: 064
  134. ENBREL [Concomitant]
     Active Substance: ETANERCEPT
     Route: 064
  135. FLUMETHASONE PIVALATE [Concomitant]
     Active Substance: FLUMETHASONE PIVALATE
     Indication: Product used for unknown indication
     Route: 064
  136. FLUMETHASONE PIVALATE [Concomitant]
     Active Substance: FLUMETHASONE PIVALATE
     Route: 064
  137. FOLIC ACID [Concomitant]
     Active Substance: FOLIC ACID
     Indication: Product used for unknown indication
     Route: 064
  138. FOLIC ACID [Concomitant]
     Active Substance: FOLIC ACID
     Route: 064
  139. FOLIC ACID [Concomitant]
     Active Substance: FOLIC ACID
     Route: 064
  140. FOLIC ACID [Concomitant]
     Active Substance: FOLIC ACID
     Route: 064
  141. FOLIC ACID [Concomitant]
     Active Substance: FOLIC ACID
     Route: 064
  142. FOLIC ACID [Concomitant]
     Active Substance: FOLIC ACID
     Route: 064
  143. GOLD SODIUM THIOMALATE [Concomitant]
     Active Substance: GOLD SODIUM THIOMALATE
     Indication: Product used for unknown indication
     Route: 064
  144. NAPROXEN SODIUM [Concomitant]
     Active Substance: NAPROXEN SODIUM
     Indication: Product used for unknown indication
     Route: 064
  145. LAMICTAL [Concomitant]
     Active Substance: LAMOTRIGINE
     Indication: Product used for unknown indication
     Route: 064
  146. METFORMIN HYDROCHLORIDE [Concomitant]
     Active Substance: METFORMIN HYDROCHLORIDE
     Indication: Product used for unknown indication
     Route: 064
  147. METHOTREXATE [Concomitant]
     Active Substance: METHOTREXATE
     Indication: Product used for unknown indication
     Route: 064
  148. METHOTREXATE [Concomitant]
     Active Substance: METHOTREXATE
     Route: 064
  149. METHOTREXATE [Concomitant]
     Active Substance: METHOTREXATE
     Route: 064
  150. METHOTREXATE [Concomitant]
     Active Substance: METHOTREXATE
     Route: 064
  151. METHOTREXATE [Concomitant]
     Active Substance: METHOTREXATE
     Route: 064
  152. METHOTREXATE [Concomitant]
     Active Substance: METHOTREXATE
     Route: 064
  153. METHOTREXATE [Concomitant]
     Active Substance: METHOTREXATE
     Route: 064
  154. METHOTREXATE [Concomitant]
     Active Substance: METHOTREXATE
     Route: 064
  155. METHOTREXATE [Concomitant]
     Active Substance: METHOTREXATE
     Route: 064
  156. METHOTREXATE [Concomitant]
     Active Substance: METHOTREXATE
     Route: 064
  157. METHOTREXATE [Concomitant]
     Active Substance: METHOTREXATE
     Route: 064
  158. METHOTREXATE [Concomitant]
     Active Substance: METHOTREXATE
     Route: 064
  159. METHOTREXATE [Concomitant]
     Active Substance: METHOTREXATE
     Route: 064
  160. METHOTREXATE [Concomitant]
     Active Substance: METHOTREXATE
     Route: 064
  161. MYRBETRIQ [Concomitant]
     Active Substance: MIRABEGRON
     Indication: Product used for unknown indication
     Route: 064
  162. NUCALA [Concomitant]
     Active Substance: MEPOLIZUMAB
     Indication: Product used for unknown indication
     Route: 064
  163. OTEZLA [Concomitant]
     Active Substance: APREMILAST
     Indication: Product used for unknown indication
     Route: 064
  164. OTEZLA [Concomitant]
     Active Substance: APREMILAST
     Route: 064
  165. OXYCODONE TEREPHTHALATE [Concomitant]
     Active Substance: OXYCODONE TEREPHTHALATE
     Indication: Product used for unknown indication
     Route: 064
  166. PHTHALYLSULFATHIAZOLE [Concomitant]
     Active Substance: PHTHALYLSULFATHIAZOLE
     Indication: Product used for unknown indication
     Route: 064
  167. PHTHALYLSULFATHIAZOLE [Concomitant]
     Active Substance: PHTHALYLSULFATHIAZOLE
     Route: 064
  168. PHTHALYLSULFATHIAZOLE [Concomitant]
     Active Substance: PHTHALYLSULFATHIAZOLE
     Route: 064
  169. PHTHALYLSULFATHIAZOLE [Concomitant]
     Active Substance: PHTHALYLSULFATHIAZOLE
     Route: 064
  170. PHTHALYLSULFATHIAZOLE [Concomitant]
     Active Substance: PHTHALYLSULFATHIAZOLE
     Route: 064
  171. PREDNISONE [Concomitant]
     Active Substance: PREDNISONE
     Indication: Product used for unknown indication
     Route: 064
  172. PREDNISONE [Concomitant]
     Active Substance: PREDNISONE
     Route: 064
  173. PREDNISONE [Concomitant]
     Active Substance: PREDNISONE
     Route: 064
  174. PREDNISONE [Concomitant]
     Active Substance: PREDNISONE
     Route: 064
  175. PREDNISONE [Concomitant]
     Active Substance: PREDNISONE
     Route: 064
  176. PREDNISONE [Concomitant]
     Active Substance: PREDNISONE
     Route: 064
  177. PREDNISONE [Concomitant]
     Active Substance: PREDNISONE
     Route: 064
  178. PREDNISONE [Concomitant]
     Active Substance: PREDNISONE
     Route: 064
  179. PREDNISONE [Concomitant]
     Active Substance: PREDNISONE
     Route: 064
  180. PREDNISONE [Concomitant]
     Active Substance: PREDNISONE
     Route: 064
  181. PSEUDOEPHEDRINE HYDROCHLORIDE [Concomitant]
     Active Substance: PSEUDOEPHEDRINE HYDROCHLORIDE
     Indication: Product used for unknown indication
     Route: 064
  182. PSEUDOEPHEDRINE HYDROCHLORIDE [Concomitant]
     Active Substance: PSEUDOEPHEDRINE HYDROCHLORIDE
     Route: 064
  183. PSEUDOEPHEDRINE HYDROCHLORIDE [Concomitant]
     Active Substance: PSEUDOEPHEDRINE HYDROCHLORIDE
     Route: 064
  184. PSEUDOEPHEDRINE HYDROCHLORIDE [Concomitant]
     Active Substance: PSEUDOEPHEDRINE HYDROCHLORIDE
     Route: 064
  185. RANITIDINE HYDROCHLORIDE [Concomitant]
     Active Substance: RANITIDINE HYDROCHLORIDE
     Indication: Product used for unknown indication
     Route: 064
  186. REMICADE [Concomitant]
     Active Substance: INFLIXIMAB
     Indication: Product used for unknown indication
     Route: 064
  187. REMICADE [Concomitant]
     Active Substance: INFLIXIMAB
     Route: 064
  188. REMICADE [Concomitant]
     Active Substance: INFLIXIMAB
     Route: 064
  189. REMICADE [Concomitant]
     Active Substance: INFLIXIMAB
     Route: 064
  190. REMICADE [Concomitant]
     Active Substance: INFLIXIMAB
     Route: 064
  191. REMICADE [Concomitant]
     Active Substance: INFLIXIMAB
     Route: 064
  192. TOFACITINIB [Concomitant]
     Active Substance: TOFACITINIB
     Indication: Product used for unknown indication
     Route: 064
  193. TOFACITINIB [Concomitant]
     Active Substance: TOFACITINIB
     Route: 064
  194. TOFACITINIB [Concomitant]
     Active Substance: TOFACITINIB
     Route: 064
  195. TOFACITINIB [Concomitant]
     Active Substance: TOFACITINIB
     Route: 064
  196. DIETARY SUPPLEMENT\MINERALS\VITAMINS [Concomitant]
     Active Substance: DIETARY SUPPLEMENT\MINERALS\VITAMINS
     Indication: Product used for unknown indication
     Route: 064
  197. ACETAMINOPHEN\OXYCODONE HYDROCHLORIDE [Concomitant]
     Active Substance: ACETAMINOPHEN\OXYCODONE HYDROCHLORIDE
     Indication: Product used for unknown indication
     Route: 064
  198. ACETAMINOPHEN\OXYCODONE HYDROCHLORIDE [Concomitant]
     Active Substance: ACETAMINOPHEN\OXYCODONE HYDROCHLORIDE
     Route: 064
  199. ACTEMRA [Concomitant]
     Active Substance: TOCILIZUMAB
     Indication: Product used for unknown indication
     Route: 064
  200. ACTEMRA [Concomitant]
     Active Substance: TOCILIZUMAB
     Route: 064
  201. ACTEMRA [Concomitant]
     Active Substance: TOCILIZUMAB
     Route: 064
  202. ACTEMRA [Concomitant]
     Active Substance: TOCILIZUMAB
     Route: 064
  203. ACTEMRA [Concomitant]
     Active Substance: TOCILIZUMAB
     Route: 064
  204. ACTEMRA [Concomitant]
     Active Substance: TOCILIZUMAB
     Route: 064
  205. ACTEMRA [Concomitant]
     Active Substance: TOCILIZUMAB
     Route: 064
  206. ACTEMRA [Concomitant]
     Active Substance: TOCILIZUMAB
     Route: 064
  207. ACTEMRA [Concomitant]
     Active Substance: TOCILIZUMAB
     Route: 064
  208. ACTEMRA [Concomitant]
     Active Substance: TOCILIZUMAB
     Route: 064
  209. ALENDRONATE SODIUM [Concomitant]
     Active Substance: ALENDRONATE SODIUM
     Indication: Product used for unknown indication
     Route: 064
  210. ALENDRONATE SODIUM [Concomitant]
     Active Substance: ALENDRONATE SODIUM
     Route: 064
  211. PREDNISONE [Concomitant]
     Active Substance: PREDNISONE
     Indication: Product used for unknown indication
     Route: 064
  212. PREDNISONE [Concomitant]
     Active Substance: PREDNISONE
     Route: 064
  213. PREDNISONE [Concomitant]
     Active Substance: PREDNISONE
     Route: 064
  214. PREDNISONE [Concomitant]
     Active Substance: PREDNISONE
     Route: 064
  215. PREDNISONE [Concomitant]
     Active Substance: PREDNISONE
     Route: 064
  216. ARAVA [Concomitant]
     Active Substance: LEFLUNOMIDE
     Indication: Product used for unknown indication
     Route: 064
  217. ARAVA [Concomitant]
     Active Substance: LEFLUNOMIDE
     Route: 064
  218. ARAVA [Concomitant]
     Active Substance: LEFLUNOMIDE
     Route: 064
  219. BOTULINUM TOXIN TYPE A [Concomitant]
     Active Substance: BOTULINUM TOXIN TYPE A
     Indication: Product used for unknown indication
     Route: 064
  220. BUTRANS [Concomitant]
     Active Substance: BUPRENORPHINE
     Indication: Product used for unknown indication
     Route: 064
  221. ACETAMINOPHEN [Concomitant]
     Active Substance: ACETAMINOPHEN
     Indication: Product used for unknown indication
     Route: 064
  222. ACETAMINOPHEN [Concomitant]
     Active Substance: ACETAMINOPHEN
     Route: 064
  223. ACETAMINOPHEN [Concomitant]
     Active Substance: ACETAMINOPHEN
     Route: 064
  224. ACETAMINOPHEN [Concomitant]
     Active Substance: ACETAMINOPHEN
     Route: 064
  225. CANDESARTAN [Concomitant]
     Active Substance: CANDESARTAN
     Indication: Product used for unknown indication
     Route: 064
  226. CELEBREX [Concomitant]
     Active Substance: CELECOXIB
     Indication: Product used for unknown indication
     Route: 064
  227. CELEBREX [Concomitant]
     Active Substance: CELECOXIB
     Route: 064
  228. CERTOLIZUMAB PEGOL [Concomitant]
     Active Substance: CERTOLIZUMAB PEGOL
     Indication: Product used for unknown indication
     Route: 064
  229. DESOXIMETASONE [Concomitant]
     Active Substance: DESOXIMETASONE
     Indication: Product used for unknown indication
     Route: 064
  230. DESOXIMETASONE [Concomitant]
     Active Substance: DESOXIMETASONE
     Route: 064
  231. DESOXIMETASONE [Concomitant]
     Active Substance: DESOXIMETASONE
     Route: 064
  232. DESOXIMETASONE [Concomitant]
     Active Substance: DESOXIMETASONE
     Route: 064
  233. DESOXIMETASONE [Concomitant]
     Active Substance: DESOXIMETASONE
     Route: 064
  234. DESOXIMETASONE [Concomitant]
     Active Substance: DESOXIMETASONE
     Route: 064
  235. DESOXIMETASONE [Concomitant]
     Active Substance: DESOXIMETASONE
     Route: 064
  236. ERELZI [Concomitant]
     Active Substance: ETANERCEPT-SZZS
     Indication: Product used for unknown indication
     Route: 064
  237. ERELZI [Concomitant]
     Active Substance: ETANERCEPT-SZZS
     Route: 064
  238. ERELZI [Concomitant]
     Active Substance: ETANERCEPT-SZZS
     Route: 064
  239. FOSAMAX [Concomitant]
     Active Substance: ALENDRONATE SODIUM
     Indication: Product used for unknown indication
     Route: 064
  240. FOSAMAX [Concomitant]
     Active Substance: ALENDRONATE SODIUM
     Route: 064
  241. GOLD [Concomitant]
     Active Substance: GOLD
     Indication: Product used for unknown indication
     Route: 064
  242. GOLIMUMAB [Concomitant]
     Active Substance: GOLIMUMAB
     Indication: Product used for unknown indication
     Route: 064
  243. NAPROXEN [Concomitant]
     Active Substance: NAPROXEN
     Indication: Product used for unknown indication
     Route: 064
  244. PREPARATION H HYDROCORTISONE [Concomitant]
     Active Substance: HYDROCORTISONE
     Indication: Product used for unknown indication
     Route: 064
  245. PREPARATION H HYDROCORTISONE [Concomitant]
     Active Substance: HYDROCORTISONE
     Route: 064
  246. PSEUDOEPHEDRINE HYDROCHLORIDE\TRIPROLIDINE HYDROCHLORIDE [Concomitant]
     Active Substance: PSEUDOEPHEDRINE HYDROCHLORIDE\TRIPROLIDINE HYDROCHLORIDE
     Indication: Product used for unknown indication
     Route: 064
  247. GOLD SODIUM THIOMALATE [Concomitant]
     Active Substance: GOLD SODIUM THIOMALATE
     Indication: Product used for unknown indication
     Route: 064
  248. SULFADIAZINE\TRIMETHOPRIM [Concomitant]
     Active Substance: SULFADIAZINE\TRIMETHOPRIM
     Indication: Product used for unknown indication
     Route: 064
  249. VITAMIN C [Concomitant]
     Active Substance: ASCORBIC ACID
     Indication: Product used for unknown indication
     Route: 064
  250. VITAMIN C [Concomitant]
     Active Substance: ASCORBIC ACID
     Route: 064
  251. SULFATHIAZOLE [Concomitant]
     Active Substance: SULFATHIAZOLE
     Indication: Product used for unknown indication
     Route: 064

REACTIONS (2)
  - Congenital anomaly [Unknown]
  - Foetal exposure during pregnancy [Unknown]
